FAERS Safety Report 5961170-7 (Version None)
Quarter: 2008Q4

REPORT INFORMATION
  Report Type: 
  Country: None (occurrence: None)
  Receive Date: 20081121
  Receipt Date: 20081118
  Transmission Date: 20090506
  Serious: Yes (Hospitalization)
  Sender: FDA-Public Use
  Company Number: US-ASTRAZENECA-2008UW25884

PATIENT
  Age: 69 Year
  Sex: Female

DRUGS (10)
  1. CRESTOR [Suspect]
     Indication: BLOOD CHOLESTEROL INCREASED
     Route: 048
     Dates: start: 20080101
  2. COUMADIN [Concomitant]
     Dosage: M-W-FRI
  3. COUMADIN [Concomitant]
     Dosage: TUES, THURS, SAT,SUN
  4. SINGULAIR [Concomitant]
  5. ENALAPRIL MALEATE [Concomitant]
  6. CLARINEX [Concomitant]
  7. ADVAIR HFA [Concomitant]
  8. DEPRESSION MEDICATION [Concomitant]
  9. VICODIN [Concomitant]
  10. ALLERGY SHOTS [Concomitant]

REACTIONS (4)
  - HAEMORRHAGE [None]
  - INTERNATIONAL NORMALISED RATIO INCREASED [None]
  - OEDEMA PERIPHERAL [None]
  - THROMBOSIS [None]
